FAERS Safety Report 16288011 (Version 1)
Quarter: 2019Q2

REPORT INFORMATION
  Report Type: Spontaneous
  Country: NL (occurrence: NL)
  Receive Date: 20190508
  Receipt Date: 20190508
  Transmission Date: 20190711
  Serious: Yes (Life-Threatening)
  Sender: FDA-Public Use
  Company Number: NL-ANIPHARMA-2019-NL-000022

PATIENT
  Age: 75 Year
  Sex: Male

DRUGS (6)
  1. LANTUS [Concomitant]
     Active Substance: INSULIN GLARGINE
     Dosage: 100E/ML
     Route: 065
  2. NOVORAPID [Concomitant]
     Active Substance: INSULIN ASPART
     Dosage: 100E/ML
     Route: 065
  3. BICALUTAMIDE. [Suspect]
     Active Substance: BICALUTAMIDE
     Indication: PROSTATE CANCER
     Dosage: 50 MG DAILY
     Route: 048
     Dates: start: 20190306
  4. RAMIPRIL. [Concomitant]
     Active Substance: RAMIPRIL
     Dosage: 1.25 MG
     Route: 065
  5. ACETYLSALICYLIC ACID [Concomitant]
     Active Substance: ASPIRIN
     Dosage: UNK
     Route: 065
  6. AMLODIPINE [Concomitant]
     Active Substance: AMLODIPINE BESYLATE
     Dosage: UNK
     Route: 065

REACTIONS (1)
  - Hypoglycaemia [Unknown]

NARRATIVE: CASE EVENT DATE: 20190409
